FAERS Safety Report 7257465-X (Version None)
Quarter: 2011Q1

REPORT INFORMATION
  Report Type: 
  Country: None (occurrence: None)
  Receive Date: 20110129
  Receipt Date: 20100521
  Transmission Date: 20110831
  Serious: No
  Sender: FDA-Public Use
  Company Number: US-ABBOTT-10P-163-0646571-00

PATIENT
  Sex: Female
  Weight: 67.192 kg

DRUGS (3)
  1. HUMIRA [Suspect]
     Indication: PSORIATIC ARTHROPATHY
     Route: 058
     Dates: start: 20090801
  2. HUMIRA [Suspect]
     Indication: PSORIASIS
     Route: 058
     Dates: start: 20081101, end: 20090601
  3. FIORICET [Concomitant]
     Indication: MIGRAINE
     Route: 048

REACTIONS (4)
  - MUSCLE SPASMS [None]
  - OVARIAN CYST [None]
  - ABDOMINAL PAIN [None]
  - METRORRHAGIA [None]
